FAERS Safety Report 10230659 (Version 3)
Quarter: 2014Q2

REPORT INFORMATION
  Report Type: Spontaneous
  Country: RO (occurrence: RO)
  Receive Date: 20140611
  Receipt Date: 20140625
  Transmission Date: 20141212
  Serious: Yes (Other)
  Sender: FDA-Public Use
  Company Number: RO-ROCHE-1413938

PATIENT
  Age: 57 Year
  Sex: Female
  Weight: 95 kg

DRUGS (4)
  1. AVASTIN [Suspect]
     Indication: BREAST CANCER METASTATIC
     Route: 042
     Dates: start: 20140401
  2. PACLITAXEL [Concomitant]
     Indication: BREAST CANCER METASTATIC
     Route: 042
     Dates: start: 20140401, end: 20140514
  3. FARMORUBICIN [Concomitant]
     Indication: BREAST CANCER METASTATIC
     Route: 042
     Dates: start: 20131115, end: 20140303
  4. CYCLOPHOSPHAMIDE [Concomitant]
     Indication: BREAST CANCER METASTATIC
     Route: 042
     Dates: start: 20131115, end: 20140303

REACTIONS (6)
  - Haemorrhoids thrombosed [Recovered/Resolved]
  - Urinary tract infection [Recovered/Resolved]
  - Anaemia of malignant disease [Recovered/Resolved]
  - Intertrigo candida [Recovered/Resolved]
  - Herpes simplex [Recovered/Resolved]
  - Rash pruritic [Recovered/Resolved]
